FAERS Safety Report 8288578-1 (Version None)
Quarter: 2012Q2

REPORT INFORMATION
  Report Type: 
  Country: None (occurrence: None)
  Receive Date: 20120416
  Receipt Date: 20120413
  Transmission Date: 20120825
  Serious: Yes (Other)
  Sender: FDA-Public Use
  Company Number: US-MERCK-1202USA02451

PATIENT
  Age: 68 Year
  Sex: Female

DRUGS (1)
  1. FOSAMAX [Suspect]
     Route: 048

REACTIONS (2)
  - LOW TURNOVER OSTEOPATHY [None]
  - FEMUR FRACTURE [None]
